FAERS Safety Report 8780129 (Version 1)
Quarter: 2012Q4

REPORT INFORMATION
  Report Type: 
  Country: US (occurrence: None)
  Receive Date: 20120831
  Receipt Date: 20120831
  Transmission Date: 20130627
  Serious: Yes (Other)
  Sender: FDA-Public Use
  Company Number: None

PATIENT
  Age: 47 Year
  Sex: Male
  Weight: 67.5 kg

DRUGS (1)
  1. NEURONTIN [Suspect]
     Dosage: 300mg day 1, then 600mg day 2 + 3 once daily po
     Route: 048
     Dates: start: 20120227, end: 20120229

REACTIONS (1)
  - Vomiting [None]
